FAERS Safety Report 7491360-6 (Version None)
Quarter: 2011Q2

REPORT INFORMATION
  Report Type: 
  Country: None (occurrence: None)
  Receive Date: 20110519
  Receipt Date: 20110518
  Transmission Date: 20111010
  Serious: Yes (Congenital Anomaly)
  Sender: FDA-Public Use
  Company Number: US-ABBOTT-10P-163-0678471-00

PATIENT
  Sex: Male

DRUGS (8)
  1. NORVIR [Suspect]
     Indication: DRUG EXPOSURE DURING PREGNANCY
     Route: 064
  2. NELFINAVIR MESYLATE [Suspect]
     Indication: DRUG EXPOSURE DURING PREGNANCY
     Route: 064
  3. ETRAVIRINE [Suspect]
     Indication: DRUG EXPOSURE DURING PREGNANCY
     Route: 064
  4. TRUVADA [Suspect]
     Indication: DRUG EXPOSURE DURING PREGNANCY
     Route: 064
  5. NEVIRAPINE [Suspect]
     Indication: DRUG EXPOSURE DURING PREGNANCY
     Route: 064
  6. RALTEGRAVIR [Suspect]
     Indication: DRUG EXPOSURE DURING PREGNANCY
     Route: 064
  7. DARUNAVIR ETHANOLATE [Suspect]
     Indication: DRUG EXPOSURE DURING PREGNANCY
     Route: 064
  8. ZIDOVUDINE [Suspect]
     Indication: DRUG EXPOSURE DURING PREGNANCY
     Route: 064

REACTIONS (2)
  - JOINT CREPITATION [None]
  - DRUG EXPOSURE DURING PREGNANCY [None]
